FAERS Safety Report 4951959-5 (Version None)
Quarter: 2006Q1

REPORT INFORMATION
  Report Type: 
  Country: None (occurrence: None)
  Receive Date: 20060323
  Receipt Date: 20040713
  Transmission Date: 20060701
  Serious: Yes (Hospitalization)
  Sender: FDA-Public Use
  Company Number: FR-ROCHE-374012

PATIENT
  Age: 48 Year
  Sex: Female

DRUGS (8)
  1. NAPROSYN [Suspect]
     Indication: DRUG USE FOR UNKNOWN INDICATION
     Route: 048
     Dates: start: 19960115
  2. NAPROSYN [Suspect]
     Route: 048
  3. CORTANCYL [Suspect]
     Indication: RHEUMATOID ARTHRITIS
     Route: 048
     Dates: start: 20010615
  4. NOVATREX [Suspect]
     Indication: RHEUMATOID ARTHRITIS
     Route: 048
     Dates: start: 19980515
  5. NOVATREX [Suspect]
     Route: 048
  6. REMICADE [Suspect]
     Indication: RHEUMATOID ARTHRITIS
     Dosage: SHE RECEIVED A TOTAL OF 11 DOSES OF 3 MG/KG AND 3 DOSES OF 4 MG/KG.
     Route: 042
     Dates: start: 20020819, end: 20040608
  7. SPECIAFOLDINE [Concomitant]
  8. PROPOFOL [Concomitant]

REACTIONS (2)
  - LOBAR PNEUMONIA [None]
  - TUBERCULOSIS [None]
